FAERS Safety Report 8157573 (Version 4)
Quarter: 2013Q1

REPORT INFORMATION
  Report Type: Report from Study
  Country: MX (occurrence: MX)
  Receive Date: 20110927
  Receipt Date: 20130307
  Transmission Date: 20140127
  Serious: Yes (Other)
  Sender: FDA-Public Use
  Company Number: MX-BRISTOL-MYERS SQUIBB COMPANY-16096604

PATIENT
  Age: 47 Year
  Sex: Male
  Weight: 49 kg

DRUGS (5)
  1. ERBITUX [Suspect]
     Indication: TONGUE NEOPLASM MALIGNANT STAGE UNSPECIFIED
     Dosage: LOADING DOSE DAY 1 CYCLE 1 ONLY,30JUN11-30JUN11;1D,250MG/M2 DAY 1,8,15;25AUG11-13SEP11;20D
     Route: 042
     Dates: start: 20110630, end: 20110913
  2. CARBOPLATIN [Suspect]
     Indication: TONGUE NEOPLASM MALIGNANT STAGE UNSPECIFIED
     Dosage: 1 DF : AUC 5,DAY 1,WEEKLY
     Route: 042
     Dates: start: 20110825, end: 20110913
  3. 5-FLUOROURACIL [Suspect]
     Indication: TONGUE NEOPLASM MALIGNANT STAGE UNSPECIFIED
     Dosage: DAY 1 TO 4
     Route: 042
     Dates: start: 20110825, end: 20110913
  4. MORFIN [Concomitant]
     Indication: PAIN
     Dates: start: 201107
  5. OMEPRAZOLE [Concomitant]
     Dosage: AS A PALLIATIVE
     Dates: start: 201107

REACTIONS (3)
  - White blood cell count decreased [Recovered/Resolved]
  - Neutrophil count decreased [Recovered/Resolved]
  - Anaemia [Recovered/Resolved]
